FAERS Safety Report 7271483-7 (Version None)
Quarter: 2011Q1

REPORT INFORMATION
  Report Type: 
  Country: None (occurrence: None)
  Receive Date: 20110123
  Receipt Date: 20110123
  Transmission Date: 20110831
  Serious: No
  Sender: FDA-Public Use
  Company Number: None

PATIENT
  Sex: Female
  Weight: 99.7913 kg

DRUGS (1)
  1. PROPOXYPHENE HYDROCHLORIDE [Suspect]
     Dates: start: 20080101

REACTIONS (5)
  - ARRHYTHMIA [None]
  - PALPITATIONS [None]
  - FEELING ABNORMAL [None]
  - MALAISE [None]
  - CARDIAC PACEMAKER INSERTION [None]
